FAERS Safety Report 10163708 (Version 2)
Quarter: 2014Q2

REPORT INFORMATION
  Report Type: Report from Study
  Country: DE (occurrence: NL)
  Receive Date: 20140509
  Receipt Date: 20140528
  Transmission Date: 20141212
  Serious: Yes (Death, Other)
  Sender: FDA-Public Use
  Company Number: DE-ACTELION-A-US2011-98301

PATIENT
  Age: 59 Year
  Sex: Male

DRUGS (1)
  1. VENTAVIS [Suspect]
     Indication: PULMONARY ARTERIAL HYPERTENSION
     Dosage: 6 AMPOULES DAILY
     Route: 055
     Dates: start: 20110802, end: 20120322

REACTIONS (3)
  - Pulmonary arterial hypertension [Fatal]
  - Pneumonia [Unknown]
  - Cyanosis [Unknown]
